FAERS Safety Report 14633033 (Version 1)
Quarter: 2018Q1

REPORT INFORMATION
  Report Type: Spontaneous
  Country: FR (occurrence: FR)
  Receive Date: 20180313
  Receipt Date: 20180313
  Transmission Date: 20180509
  Serious: Yes (Death, Other)
  Sender: FDA-Public Use
  Company Number: FR-SA-2018SA060355

PATIENT
  Age: 60 Year
  Sex: Male
  Weight: 65 kg

DRUGS (14)
  1. CORTANCYL [Concomitant]
     Active Substance: PREDNISONE
  2. EPREX [Concomitant]
     Active Substance: ERYTHROPOIETIN
     Route: 048
  3. LEVOTHYROX [Concomitant]
     Active Substance: LEVOTHYROXINE
     Route: 065
  4. MORPHINE [Concomitant]
     Active Substance: MORPHINE
     Dosage: EVERY 4 TO 6H
     Route: 065
  5. MOVICOL [Concomitant]
     Active Substance: POLYETHYLENE GLYCOL 3350\POTASSIUM CHLORIDE\SODIUM BICARBONATE\SODIUM CHLORIDE
     Route: 065
  6. CELLCEPT [Concomitant]
     Active Substance: MYCOPHENOLATE MOFETIL\MYCOPHENOLATE MOFETIL HYDROCHLORIDE
     Route: 048
  7. BACTRIM [Concomitant]
     Active Substance: SULFAMETHOXAZOLE\TRIMETHOPRIM
     Route: 048
  8. TRIATEC [Concomitant]
     Active Substance: RAMIPRIL
     Route: 048
  9. KAYEXALATE [Concomitant]
     Active Substance: SODIUM POLYSTYRENE SULFONATE
     Dosage: 2 DOSE THE DAY WITHOUT DIALYSIS
     Route: 048
  10. OGASTORO [Concomitant]
     Active Substance: LANSOPRAZOLE
  11. PROGRAF [Concomitant]
     Active Substance: TACROLIMUS\TACROLIMUS ANHYDROUS
     Route: 048
  12. DAFALGAN [Concomitant]
     Active Substance: ACETAMINOPHEN
     Route: 048
  13. LOVENOX [Suspect]
     Active Substance: ENOXAPARIN SODIUM
     Dosage: 2000IU EVEREY 48H
     Route: 058
     Dates: start: 20171223
  14. TAHOR [Concomitant]
     Active Substance: ATORVASTATIN CALCIUM
     Route: 048

REACTIONS (10)
  - Bronchial obstruction [Unknown]
  - Hallucination [Unknown]
  - Encephalopathy [Unknown]
  - Neutropenia [Unknown]
  - Heparin-induced thrombocytopenia [Not Recovered/Not Resolved]
  - Septic shock [Unknown]
  - Productive cough [Unknown]
  - Hypoxia [Unknown]
  - Normocytic anaemia [Unknown]
  - Thrombotic microangiopathy [Not Recovered/Not Resolved]

NARRATIVE: CASE EVENT DATE: 20171227
